FAERS Safety Report 9168458 (Version 1)
Quarter: 2013Q1

REPORT INFORMATION
  Report Type: Spontaneous
  Country: CA (occurrence: CA)
  Receive Date: 20130318
  Receipt Date: 20130318
  Transmission Date: 20140127
  Serious: Yes (Other)
  Sender: FDA-Public Use
  Company Number: PHHY2013CA024350

PATIENT
  Age: 71 Year
  Sex: Female

DRUGS (1)
  1. CALCITONIN [Suspect]
     Indication: PAIN
     Dosage: 1 DF, DAILY
     Route: 045
     Dates: start: 20130308, end: 20130311

REACTIONS (2)
  - Epistaxis [Not Recovered/Not Resolved]
  - Product quality issue [None]
